FAERS Safety Report 11244630 (Version 5)
Quarter: 2017Q1

REPORT INFORMATION
  Report Type: Spontaneous
  Country: US (occurrence: US)
  Receive Date: 20150707
  Receipt Date: 20170224
  Transmission Date: 20170428
  Serious: No
  Sender: FDA-Public Use
  Company Number: US-PFIZER INC-2015221184

PATIENT
  Age: 68 Year
  Sex: Female

DRUGS (5)
  1. IODINE. [Suspect]
     Active Substance: IODINE
     Dosage: UNK
  2. MORPHINE SULFATE. [Suspect]
     Active Substance: MORPHINE SULFATE
     Dosage: UNK
  3. ASPIRIN BAYER [Suspect]
     Active Substance: ASPIRIN
     Dosage: UNK
  4. ULTRAM [Suspect]
     Active Substance: TRAMADOL HYDROCHLORIDE
     Dosage: UNK
  5. DARVOCET A500 [Suspect]
     Active Substance: ACETAMINOPHEN\PROPOXYPHENE NAPSYLATE
     Dosage: UNK

REACTIONS (1)
  - Drug hypersensitivity [Unknown]
